FAERS Safety Report 19994519 (Version 1)
Quarter: 2021Q4

REPORT INFORMATION
  Report Type: Spontaneous
  Country: US (occurrence: US)
  Receive Date: 20211026
  Receipt Date: 20211026
  Transmission Date: 20220303
  Serious: Yes (Hospitalization)
  Sender: FDA-Public Use
  Company Number: US-CADILA HEALTHCARE LIMITED-US-ZYDUS-070704

PATIENT

DRUGS (1)
  1. GLIPIZIDE [Suspect]
     Active Substance: GLIPIZIDE
     Indication: Hypoglycaemia
     Dosage: UNK
     Route: 065

REACTIONS (10)
  - Disorientation [Unknown]
  - Hypoxia [Unknown]
  - Perseveration [Unknown]
  - Brain injury [Unknown]
  - Disinhibition [None]
  - Amnesia [Recovering/Resolving]
  - Speech disorder [Unknown]
  - Accidental overdose [Unknown]
  - Hypoglycaemia [Unknown]
  - Seizure [Unknown]
